FAERS Safety Report 8400354-5 (Version None)
Quarter: 2012Q2

REPORT INFORMATION
  Report Type: 
  Country: None (occurrence: None)
  Receive Date: 20120525
  Receipt Date: 20090323
  Transmission Date: 20120825
  Serious: Yes (Death, Hospitalization, Other)
  Sender: FDA-Public Use
  Company Number: 09-AUR-09634

PATIENT
  Age: 31 Year
  Sex: Female

DRUGS (1)
  1. FLUOXETINE [Suspect]
     Indication: PRODUCT USED FOR UNKNOWN INDICATION

REACTIONS (9)
  - RESPIRATION ABNORMAL [None]
  - HEART RATE DECREASED [None]
  - UNRESPONSIVE TO STIMULI [None]
  - CONVULSION [None]
  - PULMONARY CONGESTION [None]
  - URINARY RETENTION [None]
  - PULMONARY OEDEMA [None]
  - BLOOD PRESSURE IMMEASURABLE [None]
  - PULSELESS ELECTRICAL ACTIVITY [None]
